FAERS Safety Report 8771841 (Version 2)
Quarter: 2012Q4

REPORT INFORMATION
  Report Type: 
  Country: FR (occurrence: FR)
  Receive Date: 20120906
  Receipt Date: 20120917
  Transmission Date: 20130627
  Serious: Yes (Hospitalization)
  Sender: FDA-Public Use
  Company Number: FR-AMGEN-FRASP2012056061

PATIENT
  Age: 61 Year
  Sex: Female
  Weight: 60 kg

DRUGS (6)
  1. PROLIA [Suspect]
     Indication: PRODUCT USED FOR UNKNOWN INDICATION
     Dosage: UNK UNK, one time dose
     Route: 058
     Dates: start: 20120630
  2. STAGID [Concomitant]
     Route: 048
  3. CORTANCYL [Concomitant]
     Dosage: 200 mug, UNK
     Route: 048
  4. SKENAN [Concomitant]
  5. EUPHYLLINE                         /00003701/ [Concomitant]
  6. VENTOLINE                          /00139501/ [Concomitant]

REACTIONS (7)
  - Pneumonia [Unknown]
  - Diverticulitis [Not Recovered/Not Resolved]
  - Abscess intestinal [Not Recovered/Not Resolved]
  - Urogenital fistula [Unknown]
  - Abdominal pain [Unknown]
  - Pyrexia [Unknown]
  - Diarrhoea [Unknown]
